FAERS Safety Report 8904293 (Version 1)
Quarter: 2012Q4

REPORT INFORMATION
  Report Type: 
  Country: GR (occurrence: GR)
  Receive Date: 20121112
  Receipt Date: 20121112
  Transmission Date: 20130627
  Serious: Yes (Other)
  Sender: FDA-Public Use
  Company Number: GR-GLAXOSMITHKLINE-B0838449A

PATIENT
  Age: 35 Year
  Sex: Male

DRUGS (1)
  1. PAZOPANIB [Suspect]
     Indication: RENAL CANCER
     Route: 065

REACTIONS (3)
  - Pancreatitis [Recovered/Resolved]
  - Disease progression [Unknown]
  - Amylase increased [Unknown]
